FAERS Safety Report 12705686 (Version 1)
Quarter: 2016Q3

REPORT INFORMATION
  Report Type: Spontaneous
  Country: FR (occurrence: FR)
  Receive Date: 20160901
  Receipt Date: 20160901
  Transmission Date: 20161109
  Serious: Yes (Hospitalization)
  Sender: FDA-Public Use
  Company Number: FR-ASTRAZENECA-2016SE91369

PATIENT
  Age: 85 Year
  Sex: Female

DRUGS (3)
  1. TELMISARTAN. [Suspect]
     Active Substance: TELMISARTAN
     Indication: HYPERTENSION
     Route: 048
     Dates: start: 20160420, end: 20160715
  2. CALCIDOSE VITAMIN D [Concomitant]
     Active Substance: CALCIUM CARBONATE\CHOLECALCIFEROL
  3. ATACAND [Suspect]
     Active Substance: CANDESARTAN CILEXETIL
     Indication: HYPERTENSION
     Dosage: 8.0MG UNKNOWN
     Route: 048
     Dates: start: 20160716, end: 20160810

REACTIONS (12)
  - Acute kidney injury [Recovered/Resolved]
  - Dehydration [Unknown]
  - Candida infection [Unknown]
  - Decreased appetite [Unknown]
  - Malnutrition [Unknown]
  - Weight decreased [Recovering/Resolving]
  - Chronic gastritis [Unknown]
  - Bacterial colitis [Unknown]
  - Diverticulum intestinal [Unknown]
  - Hypotension [Unknown]
  - Diarrhoea [Recovered/Resolved]
  - Hypokalaemia [Recovered/Resolved]

NARRATIVE: CASE EVENT DATE: 20160614
